FAERS Safety Report 26120538 (Version 1)
Quarter: 2025Q4

REPORT INFORMATION
  Report Type: Spontaneous
  Country: US (occurrence: US)
  Receive Date: 20251204
  Receipt Date: 20251204
  Transmission Date: 20260117
  Serious: Yes (Hospitalization, Other)
  Sender: STRIDES
  Company Number: US-STRIDES ARCOLAB LIMITED-2025SP012989

PATIENT
  Age: 63 Year
  Sex: Female

DRUGS (5)
  1. LEVETIRACETAM [Suspect]
     Active Substance: LEVETIRACETAM
     Indication: Seizure
     Dosage: STARTED RECEIVING TREATMENT FOR 7 DAYS
     Route: 065
  2. APIXABAN [Concomitant]
     Active Substance: APIXABAN
     Indication: Atrial fibrillation
     Dosage: 5 MILLIGRAM, BID
     Route: 065
  3. ANDEXANET ALFA [Concomitant]
     Active Substance: ANDEXANET ALFA
     Indication: Subdural haematoma
     Dosage: RECEIVED BOLUS
     Route: 042
  4. ANDEXANET ALFA [Concomitant]
     Active Substance: ANDEXANET ALFA
     Dosage: RECEIVED AT INFUSION FOR 120 MINUTES
     Route: 042
  5. PROTHROMBIN COMPLEX CONCENTRATE [Concomitant]
     Active Substance: COAGULATION FACTOR IX HUMAN\COAGULATION FACTOR VII HUMAN\COAGULATION FACTOR X HUMAN\PROTEIN C\PROTEI
     Indication: Subdural haematoma
     Dosage: 3800 UNITS
     Route: 065

REACTIONS (1)
  - Drug ineffective [Unknown]
